FAERS Safety Report 9350405 (Version 4)
Quarter: 2013Q3

REPORT INFORMATION
  Report Type: Report from Study
  Country: US (occurrence: US)
  Receive Date: 20130617
  Receipt Date: 20130814
  Transmission Date: 20140515
  Serious: Yes (Death)
  Sender: FDA-Public Use
  Company Number: US-ELI_LILLY_AND_COMPANY-US201306002140

PATIENT
  Age: 96 Year
  Sex: Female
  Weight: 44.9 kg

DRUGS (7)
  1. OLANZAPINE LONG-ACTING IM [Suspect]
     Indication: SCHIZOPHRENIA
     Dosage: 405 MG, MONTHLY (1/M)
     Dates: start: 20130524
  2. ATORVASTATIN [Concomitant]
     Dosage: 20 MG, UNKNOWN
     Route: 048
  3. FENTANYL [Concomitant]
     Dosage: 20 UG, EVERY HOUR
     Route: 062
  4. KLONOPIN [Concomitant]
     Dosage: 0.5 MG, UNKNOWN
  5. ATIVAN [Concomitant]
  6. PRAZOSIN [Concomitant]
  7. MORPHINE SULFATE [Concomitant]

REACTIONS (1)
  - Death [Fatal]
